FAERS Safety Report 22223731 (Version 1)
Quarter: 2023Q2

REPORT INFORMATION
  Report Type: Spontaneous
  Country: US (occurrence: US)
  Receive Date: 20230418
  Receipt Date: 20230418
  Transmission Date: 20230722
  Serious: Yes (Other)
  Sender: FDA-Public Use
  Company Number: US-PFIZER INC-PV202300069631

PATIENT

DRUGS (2)
  1. CIBINQO [Suspect]
     Active Substance: ABROCITINIB
     Indication: Atopy
     Dosage: ONCE DAILY
  2. CIBINQO [Suspect]
     Active Substance: ABROCITINIB
     Dosage: THREE TIMES A WEEK

REACTIONS (1)
  - Lipids increased [Unknown]
